FAERS Safety Report 21029693 (Version 3)
Quarter: 2022Q4

REPORT INFORMATION
  Report Type: Report from Study
  Country: US (occurrence: US)
  Receive Date: 20220630
  Receipt Date: 20221010
  Transmission Date: 20230113
  Serious: Yes (Other)
  Sender: FDA-Public Use
  Company Number: US-TAKEDA-2022TUS038298

PATIENT
  Sex: Female

DRUGS (2)
  1. MOBOCERTINIB [Suspect]
     Active Substance: MOBOCERTINIB
     Indication: Lung neoplasm malignant
     Dosage: 160 MILLIGRAM, QD
     Route: 048
     Dates: start: 20220526
  2. MOBOCERTINIB [Suspect]
     Active Substance: MOBOCERTINIB
     Dosage: 120 MILLIGRAM, QD
     Route: 048
     Dates: start: 20220608

REACTIONS (23)
  - Spinal fracture [Recovering/Resolving]
  - Urinary retention [Unknown]
  - Sensation of foreign body [Unknown]
  - Taste disorder [Unknown]
  - Hypophagia [Unknown]
  - Salivary hypersecretion [Unknown]
  - Injury [Unknown]
  - Somatic symptom disorder [Unknown]
  - Emotional distress [Unknown]
  - Back disorder [Unknown]
  - Spinal disorder [Unknown]
  - Mobility decreased [Recovering/Resolving]
  - Spinal deformity [Recovering/Resolving]
  - Drug ineffective [Unknown]
  - Exostosis [Recovering/Resolving]
  - Arthralgia [Unknown]
  - Dehydration [Recovering/Resolving]
  - Weight decreased [Unknown]
  - Gastrooesophageal reflux disease [Unknown]
  - Fatigue [Unknown]
  - Diarrhoea [Recovering/Resolving]
  - Vomiting [Unknown]
  - Product dose omission issue [Unknown]
